FAERS Safety Report 4963514-1 (Version None)
Quarter: 2006Q1

REPORT INFORMATION
  Report Type: 
  Country: None (occurrence: None)
  Receive Date: 20060329
  Receipt Date: 20060112
  Transmission Date: 20060701
  Serious: Yes (Other)
  Sender: FDA-Public Use
  Company Number: 2005BH000083

PATIENT
  Age: 52 Year
  Sex: Female

DRUGS (2)
  1. IMMUNE GLOBULIN INTRAVENOUS (HUMAN) [Suspect]
     Indication: THROMBOCYTOPENIA
     Dosage: 70 GM; IV
     Route: 042
     Dates: start: 19981101, end: 19981101
  2. PREDNISONE [Concomitant]

REACTIONS (4)
  - DEEP VEIN THROMBOSIS [None]
  - DYSPNOEA EXERTIONAL [None]
  - PETECHIAE [None]
  - PLATELET COUNT DECREASED [None]
